FAERS Safety Report 7277619-6 (Version None)
Quarter: 2011Q1

REPORT INFORMATION
  Report Type: 
  Country: None (occurrence: None)
  Receive Date: 20110207
  Receipt Date: 20110125
  Transmission Date: 20110831
  Serious: Yes (Hospitalization, Other)
  Sender: FDA-Public Use
  Company Number: US-JNJFOC-20101103948

PATIENT
  Sex: Male
  Weight: 70.76 kg

DRUGS (11)
  1. CELLCEPT [Suspect]
     Indication: LIVER TRANSPLANT
  2. PRILOSEC [Concomitant]
  3. REMICADE [Suspect]
     Indication: INFLAMMATORY BOWEL DISEASE
     Route: 042
  4. REMICADE [Suspect]
     Route: 042
  5. AZATHIOPRINE [Suspect]
     Indication: COLITIS
     Route: 048
  6. PREDNISONE [Concomitant]
     Route: 048
  7. PREDNISONE [Concomitant]
     Route: 048
  8. TACROLIMUS [Suspect]
     Indication: LIVER TRANSPLANT
     Route: 061
  9. LIALDA [Suspect]
     Indication: LIVER TRANSPLANT
  10. PREDNISONE [Concomitant]
     Indication: LIVER TRANSPLANT
     Route: 048
  11. PREDNISONE [Concomitant]
     Route: 048

REACTIONS (8)
  - STAPHYLOCOCCAL BACTERAEMIA [None]
  - MICROANGIOPATHIC HAEMOLYTIC ANAEMIA [None]
  - THROMBOTIC MICROANGIOPATHY [None]
  - CLOSTRIDIUM DIFFICILE COLITIS [None]
  - URINARY TRACT INFECTION [None]
  - IMMUNOSUPPRESSANT DRUG LEVEL DECREASED [None]
  - PLATELET COUNT DECREASED [None]
  - INFLAMMATORY BOWEL DISEASE [None]
